FAERS Safety Report 12812259 (Version 2)
Quarter: 2017Q4

REPORT INFORMATION
  Report Type: Spontaneous
  Country: US (occurrence: US)
  Receive Date: 20161005
  Receipt Date: 20171018
  Transmission Date: 20180320
  Serious: No
  Sender: FDA-Public Use
  Company Number: US-AMGEN-USASP2016088306

PATIENT
  Age: 68 Year
  Sex: Female

DRUGS (2)
  1. PROLIA [Suspect]
     Active Substance: DENOSUMAB
     Indication: OSTEOPOROSIS POSTMENOPAUSAL
     Dosage: 60 MG, Q6MO
     Route: 058
     Dates: start: 2015
  2. ZOLOFT [Concomitant]
     Active Substance: SERTRALINE HYDROCHLORIDE
     Indication: DEPRESSION
     Dosage: UNK

REACTIONS (14)
  - Gait disturbance [Unknown]
  - Protein total decreased [Unknown]
  - Pain in extremity [Unknown]
  - Dry skin [Unknown]
  - Blood calcium increased [Unknown]
  - Laboratory test abnormal [Unknown]
  - High density lipoprotein decreased [Unknown]
  - Pruritus generalised [Not Recovered/Not Resolved]
  - Arthritis [Unknown]
  - Bone density abnormal [Not Recovered/Not Resolved]
  - Bone pain [Unknown]
  - Fatigue [Not Recovered/Not Resolved]
  - Blood chloride increased [Unknown]
  - Back pain [Unknown]

NARRATIVE: CASE EVENT DATE: 2016
